FAERS Safety Report 5982015-5 (Version None)
Quarter: 2008Q4

REPORT INFORMATION
  Report Type: 
  Country: None (occurrence: None)
  Receive Date: 20081205
  Receipt Date: 20080225
  Transmission Date: 20090506
  Serious: No
  Sender: FDA-Public Use
  Company Number: US-AMGEN-KDL263147

PATIENT
  Sex: Female
  Weight: 68.8 kg

DRUGS (8)
  1. ENBREL [Suspect]
     Indication: RHEUMATOID ARTHRITIS
     Route: 058
     Dates: start: 20071212
  2. IBUPROFEN TABLETS [Concomitant]
  3. ALEVE [Concomitant]
  4. CYMBALTA [Concomitant]
  5. ULTRAM [Concomitant]
  6. ALBUTEROL [Concomitant]
  7. PREDNISONE TAB [Concomitant]
  8. FOLIC ACID [Concomitant]

REACTIONS (2)
  - AMNESIA [None]
  - NASOPHARYNGITIS [None]
